FAERS Safety Report 6202525-5 (Version None)
Quarter: 2009Q2

REPORT INFORMATION
  Report Type: 
  Country: None (occurrence: None)
  Receive Date: 20090526
  Receipt Date: 20090520
  Transmission Date: 20091009
  Serious: Yes (Death)
  Sender: FDA-Public Use
  Company Number: US-CELGENEUS-163-20785-09042121

PATIENT
  Sex: Male

DRUGS (1)
  1. THALOMID [Suspect]
     Indication: LYMPHOMA
     Route: 048
     Dates: start: 20090409, end: 20090401

REACTIONS (2)
  - LYMPHOMA [None]
  - RESPIRATORY FAILURE [None]
